FAERS Safety Report 25506076 (Version 1)
Quarter: 2025Q3

REPORT INFORMATION
  Report Type: Spontaneous
  Country: US (occurrence: US)
  Receive Date: 20250702
  Receipt Date: 20250702
  Transmission Date: 20251021
  Serious: Yes (Life-Threatening)
  Sender: RADIUS PHARM
  Company Number: US-RADIUS HEALTH, INC.-2025US001823

PATIENT
  Sex: Female

DRUGS (1)
  1. TYMLOS [Suspect]
     Active Substance: ABALOPARATIDE
     Indication: Senile osteoporosis
     Route: 058

REACTIONS (4)
  - Palpitations [Unknown]
  - Mobility decreased [Unknown]
  - Intentional dose omission [Unknown]
  - Dyspnoea [Unknown]
